FAERS Safety Report 13983348 (Version 6)
Quarter: 2017Q4

REPORT INFORMATION
  Report Type: Report from Study
  Country: US (occurrence: US)
  Receive Date: 20170918
  Receipt Date: 20171128
  Transmission Date: 20180321
  Serious: Yes (Other)
  Sender: FDA-Public Use
  Company Number: US-PFIZER INC-2017367941

PATIENT
  Age: 63 Year
  Sex: Female

DRUGS (3)
  1. IBRANCE [Suspect]
     Active Substance: PALBOCICLIB
     Dosage: 125 MG, DAILY
     Route: 048
     Dates: start: 20170817, end: 20171124
  2. IBRANCE [Suspect]
     Active Substance: PALBOCICLIB
     Indication: BREAST CANCER
     Dosage: 125 MG, DAILY
     Route: 048
     Dates: start: 20170817, end: 20170914
  3. IBRANCE [Suspect]
     Active Substance: PALBOCICLIB
     Dosage: 125 MG, DAILY
     Route: 048
     Dates: start: 20170922, end: 20171005

REACTIONS (6)
  - Mucosal inflammation [Recovering/Resolving]
  - Bone pain [Recovering/Resolving]
  - Bone marrow failure [Unknown]
  - Fatigue [Recovering/Resolving]
  - White blood cell count decreased [Not Recovered/Not Resolved]
  - Neoplasm progression [Unknown]

NARRATIVE: CASE EVENT DATE: 2017
